FAERS Safety Report 18104415 (Version 1)
Quarter: 2020Q3

REPORT INFORMATION
  Report Type: Report from Study
  Country: US (occurrence: US)
  Receive Date: 20200803
  Receipt Date: 20200803
  Transmission Date: 20201103
  Serious: Yes (Hospitalization)
  Sender: FDA-Public Use
  Company Number: US-PFIZER INC-2020284896

PATIENT
  Age: 4 Year
  Sex: Female
  Weight: 25.8 kg

DRUGS (8)
  1. ZYLOPRIM [Suspect]
     Active Substance: ALLOPURINOL
     Dosage: 100 MG, QD
     Route: 048
     Dates: start: 20200605, end: 20200617
  2. INCB018424 [Suspect]
     Active Substance: RUXOLITINIB
     Dosage: 45 MG TABLET, BID, IM2, MC2, MC3D1?14, 29?23
     Route: 048
     Dates: start: 20191008
  3. PREDNISONE. [Suspect]
     Active Substance: PREDNISONE
     Indication: ACUTE LYMPHOCYTIC LEUKAEMIA
     Dosage: 17.5 MG TABLET, BID, MC3D1?5,29?33
     Route: 048
     Dates: start: 20200519
  4. VINCRISTINE SULFATE. [Suspect]
     Active Substance: VINCRISTINE SULFATE
     Indication: ACUTE LYMPHOCYTIC LEUKAEMIA
     Dosage: 1.35 MG, MC3D1,29
     Route: 042
     Dates: start: 20200519
  5. INCB018424 [Suspect]
     Active Substance: RUXOLITINIB
     Indication: ACUTE LYMPHOCYTIC LEUKAEMIA
     Dosage: 40 MG TABLET, BID, CONSOLIDATION, IM1, DI PT 1, DI PT 2, MC1
     Route: 048
     Dates: start: 20190304, end: 20200210
  6. METHOTREXATE SODIUM. [Suspect]
     Active Substance: METHOTREXATE SODIUM
     Indication: ACUTE LYMPHOCYTIC LEUKAEMIA
     Dosage: 12 MG, MC3D1
     Route: 037
     Dates: start: 20200519
  7. METHOTREXATE. [Suspect]
     Active Substance: METHOTREXATE
     Indication: ACUTE LYMPHOCYTIC LEUKAEMIA
     Dosage: 17 MG, MC3D8, 15, 22, 29, 36, 43
     Route: 048
     Dates: start: 20200526, end: 20200707
  8. MERCAPTOPURINE. [Suspect]
     Active Substance: MERCAPTOPURINE
     Indication: ACUTE LYMPHOCYTIC LEUKAEMIA
     Dosage: 50 MG, MC3D1?48
     Route: 048
     Dates: start: 20200519, end: 20200706

REACTIONS (4)
  - White blood cell count decreased [Not Recovered/Not Resolved]
  - Febrile neutropenia [Not Recovered/Not Resolved]
  - Platelet count decreased [Not Recovered/Not Resolved]
  - Anaemia [Not Recovered/Not Resolved]

NARRATIVE: CASE EVENT DATE: 20200706
